FAERS Safety Report 8974573 (Version 1)
Quarter: 2012Q4

REPORT INFORMATION
  Report Type: 
  Country: DE (occurrence: DE)
  Receive Date: 20121219
  Receipt Date: 20121219
  Transmission Date: 20130627
  Serious: Yes (Death)
  Sender: FDA-Public Use
  Company Number: DE-OTSUKA-EU-2012-10095

PATIENT
  Sex: Female

DRUGS (5)
  1. SAMSCA [Suspect]
     Indication: INAPPROPRIATE ANTIDIURETIC HORMONE SECRETION
     Dosage: 15 Mg milligram(s), daily dose
     Route: 065
  2. SAMSCA [Suspect]
     Dosage: 30 Mg milligram(s), daily dose
     Route: 065
  3. SAMSCA [Suspect]
     Dosage: 15 Mg milligram(s), unknown
     Route: 065
  4. SAMSCA [Suspect]
     Dosage: 15 Mg milligram(s), qod
     Route: 065
  5. SAMSCA [Suspect]
     Dosage: 30 Mg milligram(s), daily dose
     Route: 065

REACTIONS (2)
  - Sepsis [Fatal]
  - Incorrect drug administration rate [Unknown]
